FAERS Safety Report 17414076 (Version 2)
Quarter: 2020Q1

REPORT INFORMATION
  Report Type: Spontaneous
  Country: US (occurrence: US)
  Receive Date: 20200213
  Receipt Date: 20200213
  Transmission Date: 20200409
  Serious: No
  Sender: FDA-Public Use
  Company Number: US-PFIZER INC-2020041450

PATIENT
  Age: 42 Year
  Sex: Female
  Weight: 98 kg

DRUGS (26)
  1. LYRICA [Suspect]
     Active Substance: PREGABALIN
     Indication: BACK PAIN
     Dosage: 200 MG, 2X/DAY (BID)
     Route: 048
     Dates: start: 20170313, end: 2017
  2. BACLOFEN. [Concomitant]
     Active Substance: BACLOFEN
     Dosage: 10 MG, 4X/DAY (QID)
     Route: 048
     Dates: start: 20171207
  3. LIDOCAINE. [Concomitant]
     Active Substance: LIDOCAINE
     Dosage: UNK UNK, AS NEEDED (4% CREAM, EXTERNAL AS NEEDED)
  4. TRULANCE [Concomitant]
     Active Substance: PLECANATIDE
     Dosage: 3 MG, DAILY
     Route: 048
     Dates: start: 20171207
  5. CARBAMAZEPINE. [Concomitant]
     Active Substance: CARBAMAZEPINE
     Dosage: 800 MG, DAILY (200MG TABLET 1 ORAL IN AM, 1 AFTERNOON, 2 EVENING)
     Route: 048
     Dates: start: 20160920
  6. VALIUM [Concomitant]
     Active Substance: DIAZEPAM
     Dosage: 5 MG, AS NEEDED (TID)
     Route: 048
     Dates: start: 20170323, end: 2017
  7. LYRICA [Suspect]
     Active Substance: PREGABALIN
     Dosage: 200 MG, 3X/DAY (TID)
     Route: 048
     Dates: start: 20190123, end: 2019
  8. JUNEL [Concomitant]
     Active Substance: ETHINYL ESTRADIOL\NORETHINDRONE ACETATE
     Dosage: 1 DF, DAILY (.5-30 MG-MCG)
     Route: 048
  9. LYRICA [Suspect]
     Active Substance: PREGABALIN
     Dosage: 150 MG, 2X/DAY
  10. VALIUM [Concomitant]
     Active Substance: DIAZEPAM
     Dosage: 5 MG, AS NEEDED (TID)
     Route: 048
     Dates: start: 20170829
  11. BACLOFEN. [Concomitant]
     Active Substance: BACLOFEN
     Dosage: 10 MG, 2X/DAY (BID; START 1 AT BEDTIME X 1 WEEK THEN 1 TWICE DAILY)
     Route: 048
     Dates: start: 20170817, end: 2017
  12. BACLOFEN. [Concomitant]
     Active Substance: BACLOFEN
     Dosage: 10 MG, 4X/DAY (QID)
     Route: 048
     Dates: start: 20190123
  13. DULOXETINE HYDROCHLORIDE. [Concomitant]
     Active Substance: DULOXETINE HYDROCHLORIDE
     Dosage: 60 MG, 1X/DAY (AT BED TIME)
     Route: 048
     Dates: start: 20170821
  14. METOPROLOL TARTRATE. [Concomitant]
     Active Substance: METOPROLOL TARTRATE
     Dosage: 25 MG, DAILY
     Route: 048
  15. OMEPRAZOLE. [Concomitant]
     Active Substance: OMEPRAZOLE
     Dosage: 40 MG, DAILY
     Route: 048
     Dates: start: 20190123
  16. LYRICA [Suspect]
     Active Substance: PREGABALIN
     Indication: NEURALGIA
     Dosage: 200 MG, 2X/DAY (BID)
     Route: 048
     Dates: start: 20170829, end: 2017
  17. LYRICA [Suspect]
     Active Substance: PREGABALIN
     Dosage: 200 MG, 2X/DAY (TWO TIMES DAILY)
     Route: 048
     Dates: start: 20170907, end: 2017
  18. LYRICA [Suspect]
     Active Substance: PREGABALIN
     Dosage: 200 MG, 3X/DAY (TID)
     Dates: start: 20171207
  19. VALIUM [Concomitant]
     Active Substance: DIAZEPAM
     Indication: MUSCLE SPASMS
     Dosage: 5 MG, AS NEEDED (TID)
     Route: 048
     Dates: start: 20170105, end: 2017
  20. VALIUM [Concomitant]
     Active Substance: DIAZEPAM
     Dosage: 5 MG, AS NEEDED (TID)
     Route: 048
     Dates: start: 20190123
  21. OMEPRAZOLE. [Concomitant]
     Active Substance: OMEPRAZOLE
     Dosage: 40 MG, DAILY
     Route: 048
     Dates: start: 20171207
  22. VALIUM [Concomitant]
     Active Substance: DIAZEPAM
     Dosage: 5 MG, AS NEEDED (BID)
  23. DULOXETINE HYDROCHLORIDE. [Concomitant]
     Active Substance: DULOXETINE HYDROCHLORIDE
     Dosage: 60 MG, 1X/DAY (AT BED TIME)
     Route: 048
     Dates: start: 20180223
  24. IBUPROFEN. [Concomitant]
     Active Substance: IBUPROFEN
     Dosage: 600 MG, AS NEEDED (200 MG TABLET 3 ORAL AS NEEDED)
     Route: 048
  25. LYRICA [Suspect]
     Active Substance: PREGABALIN
     Dosage: 200 MG, 3X/DAY (TID)
     Route: 048
     Dates: start: 20190107, end: 201901
  26. DULOXETINE HYDROCHLORIDE. [Concomitant]
     Active Substance: DULOXETINE HYDROCHLORIDE
     Dosage: 60 MG, 1X/DAY (AT BED TIME)
     Route: 048
     Dates: start: 20190123

REACTIONS (7)
  - Intentional product use issue [Unknown]
  - Muscle twitching [Unknown]
  - Abdominal pain [Unknown]
  - Musculoskeletal chest pain [Unknown]
  - Muscle tightness [Unknown]
  - Muscle spasms [Unknown]
  - Affective disorder [Unknown]
